FAERS Safety Report 23436782 (Version 1)
Quarter: 2024Q1

REPORT INFORMATION
  Report Type: Spontaneous
  Country: AU (occurrence: AU)
  Receive Date: 20240124
  Receipt Date: 20240124
  Transmission Date: 20240409
  Serious: Yes (Other)
  Sender: FDA-Public Use
  Company Number: AU-CIPLA LTD.-2024AU00594

PATIENT

DRUGS (6)
  1. LENALIDOMIDE [Suspect]
     Active Substance: LENALIDOMIDE
     Indication: Plasma cell myeloma
     Dosage: UNK, AT UNSPECIFIED DOSE OF MORE THAN 2  CYCLES ADMINISTERED FOR EQUAL TO OR MORE THAN 2 MONTHS
     Route: 065
  2. BORTEZOMIB [Suspect]
     Active Substance: BORTEZOMIB
     Indication: Plasma cell myeloma
     Dosage: UNK, AT UNSPECIFIED DOSE OF MORE THAN 2  CYCLES ADMINISTERED FOR EQUAL TO OR MORE THAN 2 MONTHS
     Route: 065
  3. CARFILZOMIB [Suspect]
     Active Substance: CARFILZOMIB
     Indication: Plasma cell myeloma
     Dosage: UNK, AT UNSPECIFIED DOSE OF MORE THAN 2  CYCLES ADMINISTERED FOR EQUAL TO OR MORE THAN 2 MONTHS
     Route: 065
  4. THALIDOMIDE [Suspect]
     Active Substance: THALIDOMIDE
     Indication: Plasma cell myeloma
     Dosage: UNK, AT UNSPECIFIED DOSE OF MORE THAN 2  CYCLES ADMINISTERED FOR EQUAL TO OR MORE THAN 2 MONTHS
     Route: 065
  5. POMALIDOMIDE [Suspect]
     Active Substance: POMALIDOMIDE
     Indication: Plasma cell myeloma
     Dosage: UNK, AT UNSPECIFIED DOSE OF MORE THAN 2  CYCLES ADMINISTERED FOR EQUAL TO OR MORE THAN 2 MONTHS
     Route: 065
     Dates: start: 20190101, end: 20190522
  6. KIOVIG [Suspect]
     Active Substance: HUMAN IMMUNOGLOBULIN G
     Indication: Hypogammaglobulinaemia
     Dosage: UNK, 30 GRAMS
     Route: 065

REACTIONS (6)
  - Plasma cell myeloma [Unknown]
  - Palpitations [Unknown]
  - Hypertension [Unknown]
  - Bone pain [Unknown]
  - Pyrexia [Unknown]
  - Chest pain [Unknown]

NARRATIVE: CASE EVENT DATE: 20190521
